FAERS Safety Report 21225164 (Version 1)
Quarter: 2022Q3

REPORT INFORMATION
  Report Type: Spontaneous
  Country: US (occurrence: US)
  Receive Date: 20220817
  Receipt Date: 20220817
  Transmission Date: 20221026
  Serious: No
  Sender: FDA-Public Use
  Company Number: US-OTSUKA-2022_022604

PATIENT
  Age: 39 Year
  Sex: Female
  Weight: 53.07 kg

DRUGS (4)
  1. ABILIFY [Suspect]
     Active Substance: ARIPIPRAZOLE
     Indication: Depression
     Dosage: 5 MG
     Route: 065
     Dates: start: 2009, end: 20220314
  2. ABILIFY [Suspect]
     Active Substance: ARIPIPRAZOLE
     Indication: Anxiety
  3. VIIBRYD [Concomitant]
     Active Substance: VILAZODONE HYDROCHLORIDE
     Indication: Depression
     Dosage: 20 MG
     Route: 065
     Dates: start: 2009
  4. VIIBRYD [Concomitant]
     Active Substance: VILAZODONE HYDROCHLORIDE
     Indication: Anxiety

REACTIONS (19)
  - COVID-19 [Unknown]
  - Gastrointestinal bacterial overgrowth [Unknown]
  - Frustration tolerance decreased [Unknown]
  - Withdrawal syndrome [Unknown]
  - Mental disorder [Unknown]
  - Swelling [Unknown]
  - Feeling abnormal [Unknown]
  - Nervousness [Unknown]
  - Muscle spasms [Unknown]
  - Arthralgia [Recovered/Resolved]
  - Abdominal pain upper [Unknown]
  - Muscle twitching [Unknown]
  - Insomnia [Unknown]
  - Weight increased [Unknown]
  - Tremor [Unknown]
  - Rash [Unknown]
  - Urticaria [Unknown]
  - Anxiety [Unknown]
  - Product use in unapproved indication [Unknown]

NARRATIVE: CASE EVENT DATE: 20220101
